APPROVED DRUG PRODUCT: PROMETH HYDROCHLORIDE,PHENYLEPHRINE HYDROCHLORIDE W/CODEINE PHOSPHATE
Active Ingredient: CODEINE PHOSPHATE; PHENYLEPHRINE HYDROCHLORIDE; PROMETHAZINE HYDROCHLORIDE
Strength: 10MG/5ML;5MG/5ML;6.25MG/5ML
Dosage Form/Route: SYRUP;ORAL
Application: A040660 | Product #001 | TE Code: AA
Applicant: GENUS LIFE SCIENCES INC
Approved: Dec 7, 2006 | RLD: No | RS: Yes | Type: RX